FAERS Safety Report 8769078 (Version 2)
Quarter: 2012Q4

REPORT INFORMATION
  Report Type: Report from Study
  Country: AT (occurrence: AT)
  Receive Date: 20120904
  Receipt Date: 20120921
  Transmission Date: 20130627
  Serious: Yes (Hospitalization)
  Sender: FDA-Public Use
  Company Number: AT-GILEAD-2012-0060597

PATIENT
  Age: 51 Year
  Sex: Female

DRUGS (6)
  1. AMBRISENTAN [Suspect]
     Indication: PULMONARY ARTERIAL HYPERTENSION
     Dosage: 10 mg, QD
     Route: 048
     Dates: start: 20101209, end: 20110103
  2. AMBRISENTAN [Suspect]
     Dosage: UNK
     Route: 048
     Dates: start: 20110104, end: 20110201
  3. AMBRISENTAN [Suspect]
     Dosage: UNK
     Dates: start: 20110202
  4. TADALAFIL [Suspect]
     Indication: PULMONARY ARTERIAL HYPERTENSION
     Dosage: 40 mg, QD
     Route: 048
     Dates: start: 20101209, end: 20110103
  5. TADALAFIL [Suspect]
     Dosage: UNK
     Route: 048
     Dates: start: 20110104, end: 20110201
  6. TADALAFIL [Suspect]
     Dosage: UNK
     Route: 048
     Dates: start: 20110202

REACTIONS (1)
  - Syncope [Recovered/Resolved]
